FAERS Safety Report 4335440-2 (Version None)
Quarter: 2004Q2

REPORT INFORMATION
  Report Type: 
  Country: None (occurrence: None)
  Receive Date: 20040408
  Receipt Date: 20040408
  Transmission Date: 20050107
  Serious: Yes (Other)
  Sender: FDA-Public Use
  Company Number: None

PATIENT
  Age: 37 Year
  Sex: Male
  Weight: 90.7194 kg

DRUGS (1)
  1. ZICAM MATRIXX INC. [Suspect]
     Indication: NASOPHARYNGITIS
     Dosage: 1 TO 3 DAILY
     Dates: start: 20030201, end: 20030301

REACTIONS (2)
  - AGEUSIA [None]
  - ANOSMIA [None]
